FAERS Safety Report 8320714 (Version 3)
Quarter: 2012Q4

REPORT INFORMATION
  Report Type: 
  Country: JP (occurrence: JP)
  Receive Date: 20120104
  Receipt Date: 20120917
  Transmission Date: 20130627
  Serious: Yes (Death, Hospitalization)
  Sender: FDA-Public Use
  Company Number: JP-JNJFOC-20111212125

PATIENT
  Age: 79 Year
  Sex: Female
  Weight: 49 kg

DRUGS (5)
  1. REMICADE [Suspect]
     Indication: RHEUMATOID ARTHRITIS
     Dosage: 31st dose
     Route: 042
     Dates: start: 20110715
  2. REMICADE [Suspect]
     Indication: RHEUMATOID ARTHRITIS
     Dosage: 1st dose
     Route: 042
     Dates: start: 20070213
  3. METHOTREXATE [Suspect]
     Indication: RHEUMATOID ARTHRITIS
     Route: 048
     Dates: start: 200301, end: 20110909
  4. PREDONINE [Suspect]
     Indication: RHEUMATOID ARTHRITIS
     Dosage: unknown prior to 2003
     Route: 048
  5. ISONIAZID [Concomitant]
     Route: 048

REACTIONS (4)
  - Histiocytosis haematophagic [Fatal]
  - Epstein-Barr virus infection [Fatal]
  - Disseminated tuberculosis [Fatal]
  - Tuberculosis [Unknown]
